FAERS Safety Report 23739228 (Version 1)
Quarter: 2024Q2

REPORT INFORMATION
  Report Type: Spontaneous
  Country: US (occurrence: US)
  Receive Date: 20240413
  Receipt Date: 20240413
  Transmission Date: 20240716
  Serious: Yes (Other)
  Sender: FDA-Public Use
  Company Number: US-AUROBINDO-AUR-APL-2024-012492

PATIENT
  Age: 22 Year
  Sex: Male

DRUGS (4)
  1. DIPHENHYDRAMINE [Suspect]
     Active Substance: DIPHENHYDRAMINE
     Indication: Agitation
     Dosage: UNK
     Route: 065
  2. LORAZEPAM [Suspect]
     Active Substance: LORAZEPAM
     Indication: Agitation
     Dosage: UNK
     Route: 065
  3. HALOPERIDOL [Suspect]
     Active Substance: HALOPERIDOL
     Indication: Agitation
  4. MIDAZOLAM [Suspect]
     Active Substance: MIDAZOLAM
     Indication: Agitation

REACTIONS (1)
  - Drug ineffective [Unknown]
